FAERS Safety Report 21355438 (Version 2)
Quarter: 2022Q3

REPORT INFORMATION
  Report Type: Spontaneous
  Country: IT (occurrence: IT)
  Receive Date: 20220920
  Receipt Date: 20220926
  Transmission Date: 20221027
  Serious: Yes (Other)
  Sender: FDA-Public Use
  Company Number: IT-ROCHE-3176063

PATIENT
  Age: 67 Year
  Sex: Female
  Weight: 67 kg

DRUGS (21)
  1. METHYLPREDNISOLONE [Suspect]
     Active Substance: METHYLPREDNISOLONE
     Indication: Diffuse large B-cell lymphoma
     Dosage: PRIOR AE:80MG;START /END DATE PRIOR AE: 04AUG22
     Route: 048
     Dates: start: 20220527
  2. RITUXIMAB [Suspect]
     Active Substance: RITUXIMAB
     Indication: Diffuse large B-cell lymphoma
     Dosage: 375 MG/M2, EVERY3WKS; TOTAL VOL PRIOR 500ML;START/END DATE PRIOR AE:04AUG22
     Route: 042
     Dates: start: 20220527
  3. DOXORUBICIN [Suspect]
     Active Substance: DOXORUBICIN
     Indication: Diffuse large B-cell lymphoma
     Dosage: 50 MG/M2, EVERY3WKS; PRIOR AE 50MG/M2; TOTAL VOL PRIOR AE: 20ML;START/END DATE PRIOR AE:04AUG22
     Route: 048
     Dates: start: 20220527
  4. CYCLOPHOSPHAMIDE [Suspect]
     Active Substance: CYCLOPHOSPHAMIDE
     Indication: Diffuse large B-cell lymphoma
     Dosage: 750 MG/M2, EVERY3WKS; PRIOR AE:750MG/M2; TOTAL VOL PRIOR AE:500ML;START/END DATE PRIOR AE:04AUG22
     Route: 042
     Dates: start: 20220527
  5. GLOFITAMAB [Suspect]
     Active Substance: GLOFITAMAB
     Indication: Diffuse large B-cell lymphoma
     Dosage: 2.5 MG, EVERY3WKS; PRIOR AE 30MG; TOTAL VOL PRIOR AE 300ML;START/END DATE PRIOR AE:12AUG22
     Route: 042
     Dates: start: 20220623
  6. POLATUZUMAB VEDOTIN [Suspect]
     Active Substance: POLATUZUMAB VEDOTIN
     Indication: Diffuse large B-cell lymphoma
     Dosage: 120 MG; PRIOR AE:120MG; TOTAL VOL PRIOR AE:100M;L;START/END DATE PRIOR AE:04AUG22
     Route: 042
     Dates: start: 20220527
  7. PREDNISONE [Suspect]
     Active Substance: PREDNISONE
     Indication: Diffuse large B-cell lymphoma
     Dosage: 100 MG; PRIOR AE: 100MG;START AND END DATE OF MOST RECENT DOSE PRIOR TO AE: 07AUG2022
     Route: 042
     Dates: start: 20220528
  8. ACETAMINOPHEN [Concomitant]
     Active Substance: ACETAMINOPHEN
     Dosage: 1000 MG
     Dates: start: 20220812, end: 20220812
  9. LAMIVUDINE [Concomitant]
     Active Substance: LAMIVUDINE
     Dosage: 100 MG
     Dates: start: 20220513
  10. POTASSIUM ASPARTATE [Concomitant]
     Active Substance: POTASSIUM ASPARTATE
     Indication: Oedema peripheral
     Dates: start: 20220811, end: 20220811
  11. DEXAMETHASONE [Concomitant]
     Active Substance: DEXAMETHASONE
     Dosage: 20 MG
     Dates: start: 20220812, end: 20220812
  12. FUROSEMIDE [Concomitant]
     Active Substance: FUROSEMIDE
     Indication: Oedema peripheral
     Dosage: 10 MG
     Dates: start: 20220811, end: 20220811
  13. AZITHROMYCIN [Concomitant]
     Active Substance: AZITHROMYCIN
     Dosage: 500 MG
     Dates: start: 20220808, end: 20220814
  14. FILGRASTIM [Concomitant]
     Active Substance: FILGRASTIM
     Dates: start: 20220809, end: 20220813
  15. PANTOPRAZOLE SODIUM [Concomitant]
     Active Substance: PANTOPRAZOLE SODIUM
     Dosage: 40 MG
     Dates: start: 20220528
  16. CHLORPHENIRAMINE [Concomitant]
     Active Substance: CHLORPHENIRAMINE
     Dosage: 5 MG
     Dates: start: 20220812, end: 20220812
  17. ENOXAPARIN SODIUM [Concomitant]
     Active Substance: ENOXAPARIN SODIUM
     Dates: start: 20220519
  18. PANTOPRAZOLE [Concomitant]
     Active Substance: PANTOPRAZOLE
     Dosage: 40 MG
     Dates: start: 20220812, end: 20220812
  19. ACYCLOVIR [Concomitant]
     Active Substance: ACYCLOVIR
     Dosage: 400 MG
     Dates: start: 20220601
  20. ATORVASTATIN [Concomitant]
     Active Substance: ATORVASTATIN
     Dates: start: 2012
  21. MYCOSTATIN [Concomitant]
     Active Substance: NYSTATIN
     Dates: start: 20220531

REACTIONS (1)
  - Neutropenia [Recovered/Resolved]

NARRATIVE: CASE EVENT DATE: 20220907
